FAERS Safety Report 18052863 (Version 2)
Quarter: 2020Q3

REPORT INFORMATION
  Report Type: Spontaneous
  Country: AR (occurrence: AR)
  Receive Date: 20200721
  Receipt Date: 20200727
  Transmission Date: 20201103
  Serious: Yes (Other)
  Sender: FDA-Public Use
  Company Number: AR-AMGEN-ARGSP2020117129

PATIENT
  Age: 74 Year
  Sex: Female

DRUGS (2)
  1. ENBREL [Suspect]
     Active Substance: ETANERCEPT
     Dosage: 50 MG, EVERY 10 DAYS
     Route: 065
     Dates: start: 2020
  2. ENBREL [Suspect]
     Active Substance: ETANERCEPT
     Indication: RHEUMATOID ARTHRITIS
     Dosage: 50 MG, WEEKLY
     Route: 065
     Dates: start: 20060822

REACTIONS (6)
  - Pain [Not Recovered/Not Resolved]
  - Intentional product misuse [Unknown]
  - Pain in extremity [Not Recovered/Not Resolved]
  - Cataract [Unknown]
  - Osteoarthritis [Unknown]
  - Skin discolouration [Unknown]

NARRATIVE: CASE EVENT DATE: 2020
